FAERS Safety Report 4934156-9 (Version None)
Quarter: 2006Q1

REPORT INFORMATION
  Report Type: 
  Country: None (occurrence: None)
  Receive Date: 20060307
  Receipt Date: 20060223
  Transmission Date: 20060701
  Serious: Yes (Other)
  Sender: FDA-Public Use
  Company Number: DE-JNJFOC-20060205769

PATIENT
  Sex: Female
  Weight: 72 kg

DRUGS (6)
  1. DURAGESIC-100 [Suspect]
     Indication: DRUG USE FOR UNKNOWN INDICATION
     Route: 062
  2. L-THYROXIN [Interacting]
     Indication: DRUG USE FOR UNKNOWN INDICATION
     Route: 065
  3. CYMBALTA [Interacting]
     Indication: DEPRESSION
     Route: 048
  4. NEBILET [Concomitant]
     Route: 048
  5. LYRICA [Concomitant]
     Route: 048
  6. NEXIUM [Concomitant]
     Route: 048

REACTIONS (2)
  - DRUG INTERACTION [None]
  - HYPERTENSIVE CRISIS [None]
